FAERS Safety Report 18525628 (Version 21)
Quarter: 2024Q1

REPORT INFORMATION
  Report Type: Spontaneous
  Country: CA (occurrence: CA)
  Receive Date: 20201120
  Receipt Date: 20240323
  Transmission Date: 20240410
  Serious: Yes (Other)
  Sender: FDA-Public Use
  Company Number: CA-CELLTRION INC.-2019CA018471

PATIENT

DRUGS (50)
  1. INFLECTRA [Suspect]
     Active Substance: INFLIXIMAB-DYYB
     Indication: Rheumatoid arthritis
     Dosage: 5 MG/KG (500MG), 0 ,2 ,6 THEN EVERY 8 WEEKS
     Route: 042
  2. INFLECTRA [Suspect]
     Active Substance: INFLIXIMAB-DYYB
     Dosage: 3 MG/KG, 0 ,2 ,6 WEEKS, THEN EVERY 8 WEEKS
     Route: 042
  3. INFLECTRA [Suspect]
     Active Substance: INFLIXIMAB-DYYB
     Dosage: 550 MG, EVERY 6 WEEKS
     Route: 042
  4. INFLECTRA [Suspect]
     Active Substance: INFLIXIMAB-DYYB
     Dosage: 330 MG, 0, 2, 6  THEN EVERY 8 WEEKS
     Route: 042
     Dates: start: 20190129, end: 20190312
  5. INFLECTRA [Suspect]
     Active Substance: INFLIXIMAB-DYYB
     Dosage: 330 MG, 0, 2, 6 THEN EVERY 8 WEEKS)
     Route: 042
     Dates: start: 20190312
  6. INFLECTRA [Suspect]
     Active Substance: INFLIXIMAB-DYYB
     Dosage: 550 MG, EVERY 6 WEEKS
     Route: 042
     Dates: start: 20190502, end: 20190905
  7. INFLECTRA [Suspect]
     Active Substance: INFLIXIMAB-DYYB
     Dosage: 550 MG, EVERY 6 WEEKS
     Route: 042
     Dates: start: 20190905
  8. INFLECTRA [Suspect]
     Active Substance: INFLIXIMAB-DYYB
     Dosage: 1100 MG, EVERY 4 WEEKS
     Route: 042
     Dates: start: 20191003
  9. INFLECTRA [Suspect]
     Active Substance: INFLIXIMAB-DYYB
     Dosage: 1100 MG, EVERY 4 WEEKS
     Route: 042
     Dates: start: 20191003, end: 20210623
  10. INFLECTRA [Suspect]
     Active Substance: INFLIXIMAB-DYYB
     Dosage: 1100 MG, EVERY 4 WEEKS
     Route: 042
     Dates: start: 20191114
  11. INFLECTRA [Suspect]
     Active Substance: INFLIXIMAB-DYYB
     Dosage: 1100 MG, EVERY 4 WEEKS
     Route: 042
     Dates: start: 20191213
  12. INFLECTRA [Suspect]
     Active Substance: INFLIXIMAB-DYYB
     Dosage: 1100 MG, EVERY 4 WEEKS
     Route: 042
     Dates: start: 20200106
  13. INFLECTRA [Suspect]
     Active Substance: INFLIXIMAB-DYYB
     Dosage: 1100 MG, EVERY 4 WEEKS
     Route: 042
     Dates: start: 20200206
  14. INFLECTRA [Suspect]
     Active Substance: INFLIXIMAB-DYYB
     Dosage: 1100 MG, EVERY 4 WEEKS
     Route: 042
     Dates: start: 20200430, end: 20200430
  15. INFLECTRA [Suspect]
     Active Substance: INFLIXIMAB-DYYB
     Dosage: 1100 MG, EVERY 4 WEEKS
     Route: 042
     Dates: start: 20200106
  16. INFLECTRA [Suspect]
     Active Substance: INFLIXIMAB-DYYB
     Dosage: 1100 MG, EVERY 4 WEEKS
     Route: 042
     Dates: start: 20200528
  17. INFLECTRA [Suspect]
     Active Substance: INFLIXIMAB-DYYB
     Dosage: 1100 MG, EVERY 4 WEEKS
     Route: 042
     Dates: start: 20200629, end: 20200629
  18. INFLECTRA [Suspect]
     Active Substance: INFLIXIMAB-DYYB
     Dosage: 1100 MG, EVERY 4 WEEKS
     Route: 042
     Dates: start: 20200724, end: 20200724
  19. INFLECTRA [Suspect]
     Active Substance: INFLIXIMAB-DYYB
     Dosage: 1100 MG, EVERY 4 WEEKS
     Route: 042
     Dates: start: 20200820, end: 20200820
  20. INFLECTRA [Suspect]
     Active Substance: INFLIXIMAB-DYYB
     Dosage: 1100 MG, EVERY 4 WEEKS
     Route: 042
     Dates: start: 20201015
  21. INFLECTRA [Suspect]
     Active Substance: INFLIXIMAB-DYYB
     Dosage: 1100 MG, EVERY 4 WEEKS
     Route: 042
     Dates: start: 20201112
  22. INFLECTRA [Suspect]
     Active Substance: INFLIXIMAB-DYYB
     Dosage: 1100 MG, EVERY 4 WEEKS
     Route: 042
     Dates: start: 20210107, end: 20210107
  23. INFLECTRA [Suspect]
     Active Substance: INFLIXIMAB-DYYB
     Dosage: 1100 MG, EVERY 4 WEEKS
     Route: 042
     Dates: start: 20210401, end: 20210401
  24. INFLECTRA [Suspect]
     Active Substance: INFLIXIMAB-DYYB
     Dosage: 10 MG/KG, EVERY 4 WEEKS
     Route: 042
     Dates: start: 20210722
  25. INFLECTRA [Suspect]
     Active Substance: INFLIXIMAB-DYYB
     Dosage: 1100 MG, EVERY 4 WEEKS
     Route: 042
     Dates: start: 20210819
  26. INFLECTRA [Suspect]
     Active Substance: INFLIXIMAB-DYYB
     Dosage: 1100 MG, EVERY 4 WEEKS
     Route: 042
     Dates: start: 20210916
  27. INFLECTRA [Suspect]
     Active Substance: INFLIXIMAB-DYYB
     Dosage: 1100 MG, EVERY 4 WEEKS
     Route: 042
     Dates: start: 20211230
  28. INFLECTRA [Suspect]
     Active Substance: INFLIXIMAB-DYYB
     Dosage: 10 MG/KG EVERY 4 WEEKS
     Route: 042
     Dates: start: 20220127
  29. INFLECTRA [Suspect]
     Active Substance: INFLIXIMAB-DYYB
     Dosage: 10 MG/KG EVERY 4 WEEKS
     Route: 042
     Dates: start: 20220517
  30. INFLECTRA [Suspect]
     Active Substance: INFLIXIMAB-DYYB
     Dosage: 10 MG/KG EVERY 4 WEEKS
     Route: 042
     Dates: start: 20220613
  31. INFLECTRA [Suspect]
     Active Substance: INFLIXIMAB-DYYB
     Dosage: 10 MG/KG EVERY 4 WEEKS
     Route: 042
     Dates: start: 20221129
  32. INFLECTRA [Suspect]
     Active Substance: INFLIXIMAB-DYYB
     Dosage: 10 MG/KG EVERY 4 WEEKS
     Route: 042
     Dates: start: 20221222, end: 20221222
  33. INFLECTRA [Suspect]
     Active Substance: INFLIXIMAB-DYYB
     Dosage: 10 MG/KG EVERY 4 WEEKS
     Route: 042
     Dates: start: 20230320
  34. INFLECTRA [Suspect]
     Active Substance: INFLIXIMAB-DYYB
     Dosage: 1050 MG  (10 MG/KG) EVERY 4 WEEKS
     Route: 042
     Dates: start: 20230418
  35. INFLECTRA [Suspect]
     Active Substance: INFLIXIMAB-DYYB
     Dosage: 1080 MG AFTER 4 WEEKS (10MG/KG)
     Route: 042
     Dates: start: 20230710
  36. INFLECTRA [Suspect]
     Active Substance: INFLIXIMAB-DYYB
     Dosage: 10 MG/KG,EVERY 4 WEEKS
     Route: 042
     Dates: start: 20230808
  37. INFLECTRA [Suspect]
     Active Substance: INFLIXIMAB-DYYB
     Dosage: 10 MG/KG,EVERY 4 WEEKS
     Route: 042
     Dates: start: 20230808
  38. INFLECTRA [Suspect]
     Active Substance: INFLIXIMAB-DYYB
     Dosage: 1070 MG, 10MG/KG EVERY 4 WEEKS (4 WEEKS AND 1 DAY)
     Route: 042
     Dates: start: 20230906
  39. INFLECTRA [Suspect]
     Active Substance: INFLIXIMAB-DYYB
     Dosage: 10 MG/KG, EVERY 4 WEEKS (1070 MG, 4 WEEKS AND 1 DAY)
     Route: 042
     Dates: start: 20231005
  40. INFLECTRA [Suspect]
     Active Substance: INFLIXIMAB-DYYB
     Dosage: 10 MG/KG, EVERY 4 WEEKS
     Route: 042
     Dates: start: 20231201
  41. INFLECTRA [Suspect]
     Active Substance: INFLIXIMAB-DYYB
     Dosage: 10 MG/KG, EVERY 4 WEEKS
     Route: 042
     Dates: start: 20231201
  42. INFLECTRA [Suspect]
     Active Substance: INFLIXIMAB-DYYB
     Dosage: 10 MG/KG, EVERY 4 WEEKS (1190 MG, 4  WEEKS)
     Route: 042
     Dates: start: 20231227
  43. INFLECTRA [Suspect]
     Active Substance: INFLIXIMAB-DYYB
     Dosage: 10 MG/KG, EVERY 4 WEEKS ( 1190 MG, 4 WEEKS )
     Route: 042
     Dates: start: 20240122
  44. CORTISONE [Concomitant]
     Active Substance: CORTISONE
     Dosage: UNK
  45. CORTISONE [Concomitant]
     Active Substance: CORTISONE
     Dosage: 1 DF
  46. CYCLOBENZAPRINE [Concomitant]
     Active Substance: CYCLOBENZAPRINE
     Dosage: 10 MG
     Route: 048
     Dates: start: 20230830
  47. DILAUDID [Concomitant]
     Active Substance: HYDROMORPHONE HYDROCHLORIDE
     Dosage: 2 MG
     Route: 048
     Dates: start: 20230830
  48. ENTOCORT [Concomitant]
     Active Substance: BUDESONIDE
     Dosage: 10 MG
     Route: 048
     Dates: start: 20220823
  49. PREDNISONE [Concomitant]
     Active Substance: PREDNISONE
     Dosage: 5 MG
  50. PREGABALIN [Concomitant]
     Active Substance: PREGABALIN
     Dosage: 20 MG
     Route: 048
     Dates: start: 20230830

REACTIONS (26)
  - Intervertebral disc protrusion [Not Recovered/Not Resolved]
  - Colitis [Unknown]
  - Back pain [Recovering/Resolving]
  - Drug ineffective [Unknown]
  - Therapeutic response shortened [Unknown]
  - Infusion site coldness [Recovering/Resolving]
  - Frequent bowel movements [Unknown]
  - Feeling cold [Recovered/Resolved]
  - Limb discomfort [Recovered/Resolved]
  - Ligament sprain [Recovering/Resolving]
  - Rhinorrhoea [Recovered/Resolved]
  - Nasal congestion [Recovered/Resolved]
  - Feeling cold [Not Recovered/Not Resolved]
  - Tonsillitis bacterial [Unknown]
  - Nasopharyngitis [Recovered/Resolved]
  - Diarrhoea [Not Recovered/Not Resolved]
  - Fatigue [Unknown]
  - Condition aggravated [Recovered/Resolved]
  - Arthralgia [Recovered/Resolved]
  - Blood pressure increased [Unknown]
  - Fatigue [Recovered/Resolved]
  - Pyrexia [Recovered/Resolved]
  - Hernia [Recovered/Resolved]
  - Off label use [Unknown]
  - Off label use [Unknown]
  - Inappropriate schedule of product administration [Unknown]

NARRATIVE: CASE EVENT DATE: 20190502
